FAERS Safety Report 9841350 (Version 1)
Quarter: 2013Q4

REPORT INFORMATION
  Report Type: Spontaneous
  Country: US (occurrence: None)
  Receive Date: 20131219
  Receipt Date: 20131219
  Transmission Date: 20140711
  Serious: Yes (Other)
  Sender: FDA-Public Use
  Company Number: 163-20785-12102947

PATIENT
  Age: 59 Year
  Sex: Male

DRUGS (9)
  1. THALOMID [Suspect]
     Indication: PLASMA CELL MYELOMA
     Route: 048
     Dates: start: 201210
  2. NEULASTA [Suspect]
     Indication: NEUTROPENIA
     Route: 058
  3. ACYCLOVIR(ACICLOVIR) [Concomitant]
  4. CALCIM(CALCIUM) [Concomitant]
  5. OMEGA 3 (FISH OIL) [Concomitant]
  6. WELLBUTRIN(BUPROPION HYDROCHLORIDE) [Concomitant]
  7. CHEMOTHERAPY DRUG(CHEMOTHERAPETUCIS NOS) [Concomitant]
  8. LISINOPRIL(LISINOPRIL) [Concomitant]
  9. VELCADE(BORTEZOMIB) [Concomitant]

REACTIONS (2)
  - Hypotension [None]
  - Loss of consciousness [None]
